FAERS Safety Report 22339443 (Version 1)
Quarter: 2023Q2

REPORT INFORMATION
  Report Type: Spontaneous
  Country: FR (occurrence: FR)
  Receive Date: 20230518
  Receipt Date: 20230518
  Transmission Date: 20230722
  Serious: Yes (Death)
  Sender: FDA-Public Use
  Company Number: None

PATIENT

DRUGS (5)
  1. PACLITAXEL [Suspect]
     Active Substance: PACLITAXEL
     Indication: Breast cancer
     Dosage: 80 MG/M2, WEEKLY
     Route: 064
     Dates: start: 20211108, end: 20211220
  2. EPIRUBICIN HYDROCHLORIDE [Suspect]
     Active Substance: EPIRUBICIN HYDROCHLORIDE
     Indication: Breast cancer
     Dosage: 100 MG/M2, EVERY 3 WEEKS
     Route: 064
     Dates: start: 20210809, end: 202110
  3. PERJETA [Suspect]
     Active Substance: PERTUZUMAB
     Indication: Breast cancer
     Dosage: 840 MG THEN 420 MG
     Route: 064
     Dates: start: 20211108, end: 20211220
  4. HERCEPTIN [Suspect]
     Active Substance: TRASTUZUMAB
     Indication: Breast cancer
     Dosage: 8 MG/KG COURSE 1 THEN  6 MG/KG EVERY 21 DAYS
     Route: 064
     Dates: start: 20211108, end: 20211220
  5. CYCLOPHOSPHAMIDE [Suspect]
     Active Substance: CYCLOPHOSPHAMIDE
     Indication: Breast cancer
     Dosage: 600 MG/M2, EVERY 3 WEEKS
     Route: 064
     Dates: start: 20210809, end: 202110

REACTIONS (3)
  - Renal aplasia [Fatal]
  - Foetal growth abnormality [Fatal]
  - Oligohydramnios [Fatal]

NARRATIVE: CASE EVENT DATE: 20220118
